FAERS Safety Report 13243528 (Version 1)
Quarter: 2017Q1

REPORT INFORMATION
  Report Type: Spontaneous
  Country: US (occurrence: US)
  Receive Date: 20170217
  Receipt Date: 20170217
  Transmission Date: 20170428
  Serious: No
  Sender: FDA-Public Use
  Company Number: None

PATIENT
  Age: 69 Year
  Sex: Female

DRUGS (1)
  1. HARVONI [Suspect]
     Active Substance: LEDIPASVIR\SOFOSBUVIR
     Indication: HEPATITIS C
     Dosage: 90/400MG QD PO
     Route: 048
     Dates: start: 20170113

REACTIONS (3)
  - Vision blurred [None]
  - Premature ageing [None]
  - Alopecia [None]

NARRATIVE: CASE EVENT DATE: 20170203
